FAERS Safety Report 7451441-X (Version None)
Quarter: 2011Q2

REPORT INFORMATION
  Report Type: 
  Country: None (occurrence: None)
  Receive Date: 20110502
  Receipt Date: 20110426
  Transmission Date: 20111010
  Serious: Yes (Hospitalization)
  Sender: FDA-Public Use
  Company Number: A0890370A

PATIENT
  Sex: Female
  Weight: 63.6 kg

DRUGS (3)
  1. AVANDIA [Suspect]
     Dosage: 8MG PER DAY
     Route: 048
     Dates: start: 20010301, end: 20070801
  2. GLUCOPHAGE [Concomitant]
  3. ACCUPRIL [Concomitant]

REACTIONS (3)
  - CORONARY ARTERY DISEASE [None]
  - MYOCARDIAL INFARCTION [None]
  - CARDIOVASCULAR DISORDER [None]
